FAERS Safety Report 9355045 (Version 3)
Quarter: 2013Q3

REPORT INFORMATION
  Report Type: Report from Study
  Country: CA (occurrence: CA)
  Receive Date: 20130619
  Receipt Date: 20130715
  Transmission Date: 20140515
  Serious: Yes (Other)
  Sender: FDA-Public Use
  Company Number: CA-ROCHE-1226048

PATIENT
  Sex: Female
  Weight: 57.6 kg

DRUGS (6)
  1. AVASTIN [Suspect]
     Indication: OLIGODENDROGLIOMA
     Dosage: THERAPY START DATE: 13/MAR/2013
     Route: 042
     Dates: end: 20130613
  2. AVASTIN [Suspect]
     Indication: GLIOBLASTOMA
  3. DEXAMETHASONE [Concomitant]
  4. RANITIDINE [Concomitant]
  5. VIMPAT [Concomitant]
  6. KEPPRA [Concomitant]

REACTIONS (4)
  - Neoplasm [Unknown]
  - Asthenia [Not Recovered/Not Resolved]
  - Disease progression [Unknown]
  - Joint swelling [Not Recovered/Not Resolved]
